FAERS Safety Report 5095577-X (Version None)
Quarter: 2006Q3

REPORT INFORMATION
  Report Type: 
  Country: None (occurrence: None)
  Receive Date: 20060901
  Receipt Date: 20060327
  Transmission Date: 20061208
  Serious: Yes (Hospitalization)
  Sender: FDA-Public Use
  Company Number: JP-ABBOTT-06P-087-0329268-00

PATIENT
  Age: 71 Year
  Sex: Male
  Weight: 57 kg

DRUGS (36)
  1. CLARITH [Suspect]
     Indication: BRONCHITIS
     Route: 048
     Dates: start: 20051024, end: 20051027
  2. CLARITH [Suspect]
  3. GLIBENCLAMIDE [Interacting]
     Indication: DIABETES MELLITUS
     Route: 048
     Dates: start: 20040601, end: 20051027
  4. GLIBENCLAMIDE [Interacting]
  5. THEOPHYLLINE [Concomitant]
     Indication: BRONCHITIS
     Route: 048
     Dates: start: 20051018, end: 20051027
  6. THEOPHYLLINE [Concomitant]
  7. AMBROXOL HYDROCHLORIDE [Concomitant]
     Indication: DRUG USE FOR UNKNOWN INDICATION
     Route: 048
     Dates: start: 20051018, end: 20051027
  8. AMBROXOL HYDROCHLORIDE [Concomitant]
  9. CETIRIZINE HCL [Concomitant]
     Indication: DRUG USE FOR UNKNOWN INDICATION
     Route: 048
     Dates: start: 20051024, end: 20051027
  10. CETIRIZINE HCL [Concomitant]
  11. CODEINE PHOSPHATE [Concomitant]
     Indication: DRUG USE FOR UNKNOWN INDICATION
     Route: 048
     Dates: start: 20051018, end: 20051027
  12. CODEINE PHOSPHATE [Concomitant]
  13. MAGNESIUM OXIDE [Concomitant]
     Indication: DRUG USE FOR UNKNOWN INDICATION
     Route: 048
     Dates: start: 20051018, end: 20051027
  14. MAGNESIUM OXIDE [Concomitant]
  15. SERRAPEPTASE [Concomitant]
     Indication: DRUG USE FOR UNKNOWN INDICATION
     Route: 048
     Dates: start: 20051018, end: 20051027
  16. SERRAPEPTASE [Concomitant]
  17. PIPERACILLIN SODIUM [Concomitant]
     Indication: C-REACTIVE PROTEIN INCREASED
     Route: 042
     Dates: start: 20051020, end: 20051027
  18. PIPERACILLIN SODIUM [Concomitant]
  19. LEVOFLOXACIN [Concomitant]
     Indication: DRUG USE FOR UNKNOWN INDICATION
     Route: 048
     Dates: start: 20051018, end: 20051027
  20. LEVOFLOXACIN [Concomitant]
  21. LEVOFLOXACIN [Concomitant]
     Route: 048
     Dates: start: 20051018
  22. VOGLIBOSE [Concomitant]
     Indication: DIABETES MELLITUS
     Route: 048
     Dates: end: 20051027
  23. VOGLIBOSE [Concomitant]
  24. CIMETIDINE [Concomitant]
     Indication: GASTRITIS
     Route: 048
     Dates: end: 20051027
  25. CIMETIDINE [Concomitant]
  26. BERAPROST SODIUM [Concomitant]
     Indication: DRUG USE FOR UNKNOWN INDICATION
     Route: 048
     Dates: end: 20051027
  27. BERAPROST SODIUM [Concomitant]
  28. TOCOPHEROL ACETATE [Concomitant]
     Indication: DRUG USE FOR UNKNOWN INDICATION
     Route: 048
     Dates: end: 20051027
  29. TOCOPHEROL ACETATE [Concomitant]
  30. ETIZOLAM [Concomitant]
     Indication: INSOMNIA
     Route: 048
     Dates: end: 20051027
  31. ETIZOLAM [Concomitant]
  32. EPALRESTAT [Concomitant]
     Indication: DRUG USE FOR UNKNOWN INDICATION
     Route: 048
     Dates: end: 20051027
  33. EPALRESTAT [Concomitant]
  34. SENNA LEAF SENNA POD [Concomitant]
     Indication: DRUG USE FOR UNKNOWN INDICATION
     Route: 048
     Dates: end: 20051027
  35. SENNA LEAF SENNA POD [Concomitant]
  36. AMLODIPINE BESYLATE [Concomitant]
     Indication: HYPERTENSION
     Route: 048
     Dates: end: 20051027

REACTIONS (3)
  - DEPRESSED LEVEL OF CONSCIOUSNESS [None]
  - DRUG INTERACTION [None]
  - HYPOGLYCAEMIA [None]
